FAERS Safety Report 21005540 (Version 3)
Quarter: 2022Q3

REPORT INFORMATION
  Report Type: Report from Study
  Country: JP (occurrence: None)
  Receive Date: 20220624
  Receipt Date: 20220815
  Transmission Date: 20221026
  Serious: Yes (Hospitalization, Other)
  Sender: FDA-Public Use
  Company Number: JP-Merck Healthcare KGaA-9331314

PATIENT
  Age: 85 Year
  Sex: Male
  Weight: 60 kg

DRUGS (6)
  1. BAVENCIO [Suspect]
     Active Substance: AVELUMAB
     Indication: Transitional cell carcinoma
     Dosage: ADMINISTRATION RATE: 280 ML/HOUR
     Route: 041
     Dates: start: 20210603, end: 20220401
  2. BAVENCIO [Suspect]
     Active Substance: AVELUMAB
     Dosage: ADMINISTRATION RATE: 280 ML/HOUR
     Route: 041
     Dates: start: 20220415, end: 20220506
  3. ACETAMINOPHEN [Concomitant]
     Active Substance: ACETAMINOPHEN
     Indication: Premedication
     Route: 048
     Dates: start: 20210603, end: 20220506
  4. DIPHENHYDRAMINE [Concomitant]
     Active Substance: DIPHENHYDRAMINE
     Indication: Premedication
     Route: 048
     Dates: start: 20210603, end: 20210603
  5. CHLORPHENIRAMINE MALEATE [Concomitant]
     Active Substance: CHLORPHENIRAMINE MALEATE
     Indication: Premedication
     Route: 041
     Dates: start: 20210716, end: 20210820
  6. CHLORPHENIRAMINE MALEATE [Concomitant]
     Active Substance: CHLORPHENIRAMINE MALEATE
     Route: 041
     Dates: start: 20210903, end: 20220506

REACTIONS (2)
  - Haematuria [Unknown]
  - Platelet count decreased [Unknown]

NARRATIVE: CASE EVENT DATE: 20220516
